FAERS Safety Report 18559735 (Version 6)
Quarter: 2021Q1

REPORT INFORMATION
  Report Type: Spontaneous
  Country: US (occurrence: US)
  Receive Date: 20201130
  Receipt Date: 20210308
  Transmission Date: 20210419
  Serious: No
  Sender: FDA-Public Use
  Company Number: US-JNJFOC-20201132758

PATIENT
  Age: 62 Year
  Sex: Female
  Weight: 58.11 kg

DRUGS (1)
  1. WOMENS ROGAINE UNSCENTED [Suspect]
     Active Substance: MINOXIDIL
     Indication: ALOPECIA
     Dosage: DOSE: HALF A CAP FULL ?PRODUCT LAST ADMINISTERED ON 25?NOV?2020
     Route: 061
     Dates: start: 20200815, end: 20201116

REACTIONS (6)
  - Application site haemorrhage [Recovering/Resolving]
  - Dandruff [Recovering/Resolving]
  - Application site exfoliation [Recovering/Resolving]
  - Application site inflammation [Recovering/Resolving]
  - Application site pruritus [Recovering/Resolving]
  - Application site ulcer [Recovering/Resolving]

NARRATIVE: CASE EVENT DATE: 20201116
